FAERS Safety Report 8602734-1 (Version None)
Quarter: 2012Q2

REPORT INFORMATION
  Report Type: 
  Country: None (occurrence: None)
  Receive Date: 20120423
  Receipt Date: 20081104
  Transmission Date: 20120825
  Serious: Yes (Other)
  Sender: FDA-Public Use
  Company Number: PHEH2008US08832

PATIENT
  Age: 57 Year
  Sex: Female
  Weight: 79.8 kg

DRUGS (5)
  1. ATIVAN [Concomitant]
  2. ZANTAC [Concomitant]
  3. LIPITOR [Concomitant]
  4. LEXAPRO [Concomitant]
  5. FEMARA [Suspect]
     Indication: BREAST CANCER
     Dosage: 2.5 MG, QD, ORAL
     Route: 048
     Dates: start: 20080913, end: 20080916

REACTIONS (3)
  - PRURITUS [None]
  - URTICARIA [None]
  - RASH GENERALISED [None]
